FAERS Safety Report 21309251 (Version 2)
Quarter: 2022Q4

REPORT INFORMATION
  Report Type: Report from Study
  Country: DE (occurrence: DE)
  Receive Date: 20220908
  Receipt Date: 20221012
  Transmission Date: 20230113
  Serious: Yes (Other)
  Sender: FDA-Public Use
  Company Number: DE-SA-2022SA366978

PATIENT

DRUGS (5)
  1. AFLIBERCEPT [Suspect]
     Active Substance: AFLIBERCEPT
     Indication: Colorectal cancer metastatic
     Dosage: 4 MG/KG AS AN INTRAVENOUS (IV) INFUSION OVER 1 H, REPEATED EVERY 2 WEEKS
     Route: 041
  2. IRINOTECAN [Suspect]
     Active Substance: IRINOTECAN
     Indication: Colorectal cancer metastatic
     Dosage: 180 MG/M2, REPEATED EVERY 2 WEEKS
     Route: 042
  3. LEUCOVORIN [Suspect]
     Active Substance: LEUCOVORIN
     Indication: Colorectal cancer metastatic
     Dosage: 400 MG/M2 ON DAY 1, REPEATED EVERY 2 WEEKS
     Route: 042
  4. FLUOROURACIL [Suspect]
     Active Substance: FLUOROURACIL
     Indication: Colorectal cancer metastatic
     Dosage: 400 MG/M2, REPEATED EVERY 2 WEEKS
     Route: 040
  5. FLUOROURACIL [Suspect]
     Active Substance: FLUOROURACIL
     Dosage: 2400 MG/M2 IV INFUSION OVER 46 H, REPEATED EVERY 2 WEEKS
     Route: 041

REACTIONS (2)
  - Rectal neoplasm [Unknown]
  - Tumour haemorrhage [Unknown]
